FAERS Safety Report 8385393 (Version 2)
Quarter: 2012Q4

REPORT INFORMATION
  Report Type: 
  Country: US (occurrence: US)
  Receive Date: 20120202
  Receipt Date: 20121016
  Transmission Date: 20130627
  Serious: Yes (Death)
  Sender: FDA-Public Use
  Company Number: US-ROCHE-1035684

PATIENT
  Sex: Male

DRUGS (4)
  1. AVASTIN [Suspect]
     Indication: COLON CANCER
     Route: 065
  2. LEUCOVORIN [Concomitant]
  3. 5-FU [Concomitant]
  4. CPT-11 [Concomitant]

REACTIONS (1)
  - Disease progression [Fatal]
